FAERS Safety Report 15106334 (Version 1)
Quarter: 2018Q3

REPORT INFORMATION
  Report Type: Spontaneous
  Country: PT (occurrence: PT)
  Receive Date: 20180704
  Receipt Date: 20180704
  Transmission Date: 20181010
  Serious: Yes (Other)
  Sender: FDA-Public Use
  Company Number: PT-PFIZER INC-2018267073

PATIENT
  Age: 16 Year
  Sex: Male

DRUGS (2)
  1. TESTOSTERONE ENANTATE [Suspect]
     Active Substance: TESTOSTERONE
     Indication: DELAYED PUBERTY
     Dosage: UNK, MONTHLY
     Route: 030
  2. SOMATROPIN. [Suspect]
     Active Substance: SOMATROPIN
     Indication: PRADER-WILLI SYNDROME
     Dosage: UNK

REACTIONS (8)
  - Sleep apnoea syndrome [Unknown]
  - Aggression [Unknown]
  - Cognitive disorder [Unknown]
  - Obesity [Unknown]
  - Stubbornness [Unknown]
  - Impulsive behaviour [Unknown]
  - Insulin resistance [Unknown]
  - Hyperphagia [Unknown]
